FAERS Safety Report 5781071-7 (Version None)
Quarter: 2008Q2

REPORT INFORMATION
  Report Type: 
  Country: None (occurrence: None)
  Receive Date: 20080618
  Receipt Date: 20080609
  Transmission Date: 20081010
  Serious: Yes (Hospitalization)
  Sender: FDA-Public Use
  Company Number: DSA_31962_2008

PATIENT
  Sex: Female

DRUGS (5)
  1. ATIVAN [Suspect]
     Dosage: (1 TO 2 MG, ORAL), (2 MG ORAL)
     Route: 048
     Dates: start: 20070301, end: 20071001
  2. ATIVAN [Suspect]
     Dosage: (1 TO 2 MG, ORAL), (2 MG ORAL)
     Route: 048
     Dates: start: 20071001, end: 20080501
  3. ATIVAN [Suspect]
     Indication: DRUG USE FOR UNKNOWN INDICATION
     Dosage: (DF)
  4. HALDOL SOLUTAB [Concomitant]
  5. INTERFERON [Concomitant]

REACTIONS (3)
  - INCORRECT DRUG ADMINISTRATION DURATION [None]
  - MULTIPLE SCLEROSIS [None]
  - UNEVALUABLE EVENT [None]
